FAERS Safety Report 8722173 (Version 2)
Quarter: 2012Q4

REPORT INFORMATION
  Report Type: 
  Country: JP (occurrence: JP)
  Receive Date: 20120814
  Receipt Date: 20120904
  Transmission Date: 20130627
  Serious: Yes (Other)
  Sender: FDA-Public Use
  Company Number: JP-ASTRAZENECA-2012SE56607

PATIENT
  Age: 82 Year
  Sex: Male

DRUGS (8)
  1. MEROPEN [Suspect]
     Indication: PNEUMONIA
     Route: 041
  2. MEROPEN [Suspect]
     Indication: SEPSIS
     Route: 041
  3. CLINDAMYCIN HYDROCHLORIDE [Suspect]
     Indication: PNEUMONIA
  4. AMPICILLIN AND SULBACTAM [Suspect]
     Indication: SEPSIS
     Route: 042
  5. AMPICILLIN SODIUM/SULBACTAM SODIUM [Suspect]
     Indication: SEPSIS
     Route: 065
  6. PAZUFLOXACIN MESILATE [Concomitant]
  7. CEFTAZIDIME HYDRATE [Concomitant]
  8. PREDNISOLONE SODIUM SUCCINATE [Concomitant]

REACTIONS (3)
  - Critical illness polyneuropathy [Recovering/Resolving]
  - Sepsis [None]
  - Pneumonia [None]
